FAERS Safety Report 9369550 (Version 1)
Quarter: 2013Q2

REPORT INFORMATION
  Report Type: Spontaneous
  Country: US (occurrence: US)
  Receive Date: 20130626
  Receipt Date: 20130626
  Transmission Date: 20140414
  Serious: No
  Sender: FDA-Public Use
  Company Number: US-PFIZER INC-2013187919

PATIENT
  Sex: Female

DRUGS (2)
  1. ADVIL [Suspect]
     Indication: EPICONDYLITIS
     Dosage: UNK, 3X/DAY
     Dates: start: 201306, end: 201306
  2. ADVIL [Suspect]
     Dosage: UNK, 1X/DAY
     Dates: start: 201306, end: 201306

REACTIONS (1)
  - Rash [Unknown]
